FAERS Safety Report 24387494 (Version 1)
Quarter: 2024Q4

REPORT INFORMATION
  Report Type: Spontaneous
  Country: US (occurrence: None)
  Receive Date: 20241001
  Receipt Date: 20241001
  Transmission Date: 20250115
  Serious: Yes (Hospitalization)
  Sender: Public
  Company Number: None

PATIENT
  Age: 65 Year
  Sex: Female
  Weight: 47 kg

DRUGS (2)
  1. APIXABAN [Suspect]
     Active Substance: APIXABAN
     Indication: Deep vein thrombosis
     Dosage: FREQUENCY : TWICE A DAY;?
     Route: 048
     Dates: end: 20240219
  2. ASPIRIN [Suspect]
     Active Substance: ASPIRIN
     Dosage: FREQUENCY : DAILY;?
     Route: 048
     Dates: end: 20230219

REACTIONS (3)
  - Anaemia [None]
  - Acute kidney injury [None]
  - Ovarian cancer stage IV [None]

NARRATIVE: CASE EVENT DATE: 20240219
